FAERS Safety Report 21712488 (Version 1)
Quarter: 2022Q4

REPORT INFORMATION
  Report Type: Spontaneous
  Country: US (occurrence: None)
  Receive Date: 20221208
  Receipt Date: 20221208
  Transmission Date: 20230112
  Serious: Yes (Hospitalization)
  Sender: FDA-Public Use
  Company Number: None

PATIENT
  Age: 75 Year
  Sex: Male
  Weight: 78 kg

DRUGS (1)
  1. REMDESIVIR [Suspect]
     Active Substance: REMDESIVIR
     Indication: COVID-19
     Dosage: FREQUENCY : ONCE;?
     Route: 042
     Dates: start: 20221115, end: 20221115

REACTIONS (7)
  - Influenza virus test positive [None]
  - SARS-CoV-2 test positive [None]
  - Pneumonia [None]
  - Acute respiratory failure [None]
  - Infusion related reaction [None]
  - Mental status changes [None]
  - Partial seizures [None]

NARRATIVE: CASE EVENT DATE: 20221115
